FAERS Safety Report 19417628 (Version 1)
Quarter: 2021Q2

REPORT INFORMATION
  Report Type: Report from Study
  Country: None (occurrence: CA)
  Receive Date: 20210615
  Receipt Date: 20210615
  Transmission Date: 20210717
  Serious: Yes (Hospitalization)
  Sender: FDA-Public Use
  Company Number: CA-ABBVIE-21K-028-3944577-00

PATIENT
  Age: 58 Year
  Sex: Female

DRUGS (1)
  1. RINVOQ [Suspect]
     Active Substance: UPADACITINIB
     Indication: RHEUMATOID ARTHRITIS
     Route: 048
     Dates: start: 20210605, end: 20210608

REACTIONS (6)
  - Insomnia [Unknown]
  - Feeling abnormal [Unknown]
  - Hospitalisation [Unknown]
  - Emotional distress [Unknown]
  - Pain [Unknown]
  - Feeding disorder [Unknown]

NARRATIVE: CASE EVENT DATE: 202106
